FAERS Safety Report 9164422 (Version 1)
Quarter: 2013Q1

REPORT INFORMATION
  Report Type: Spontaneous
  Country: US (occurrence: None)
  Receive Date: 20130221
  Receipt Date: 20130221
  Transmission Date: 20140127
  Serious: Yes (Other)
  Sender: FDA-Public Use
  Company Number: AUR-APL-2013-01447

PATIENT
  Age: 52 Year
  Sex: Male
  Weight: 76.64 kg

DRUGS (6)
  1. GABAPENTIN (GABAPENTIN) [Suspect]
     Indication: NEUROPATHY PERIPHERAL
     Dosage: 900 MG (300 MG, 3 IN 1 D), UNKNOWN?
  2. LYRICA (PREGABALIN) [Suspect]
     Indication: NEUROPATHY PERIPHERAL
     Dosage: 300 MG (100 MG, 3 IN 1 D), ORAL?
     Route: 048
     Dates: start: 201206
  3. TRAMADOL (TRAMADOL) [Suspect]
     Indication: PAIN
     Dosage: 200 MG (50 MG, 4 IN 1 D), UNKNOWN?
     Dates: start: 2012
  4. NORTRIPTYLINE (NORTRIPTYLINE) [Concomitant]
  5. RANITIDINE (RANITIDINE) [Concomitant]
  6. TERAZOSIN (TERAZOSIN) [Concomitant]

REACTIONS (17)
  - Convulsion [None]
  - Pain [None]
  - Thinking abnormal [None]
  - Confusional state [None]
  - Neuropathy peripheral [None]
  - Drug ineffective [None]
  - Intervertebral disc degeneration [None]
  - Dizziness [None]
  - Feeling abnormal [None]
  - Hypoaesthesia [None]
  - Spondylitis [None]
  - Back pain [None]
  - Pruritus [None]
  - Scratch [None]
  - Paraesthesia [None]
  - Gout [None]
  - Contusion [None]
